FAERS Safety Report 9773699 (Version 2)
Quarter: 2013Q4

REPORT INFORMATION
  Report Type: Spontaneous
  Country: US (occurrence: US)
  Receive Date: 20131219
  Receipt Date: 20131219
  Transmission Date: 20140711
  Serious: No
  Sender: FDA-Public Use
  Company Number: US-MYLANLABS-2013S1009655

PATIENT
  Age: 52 Year
  Sex: Female
  Weight: 87.54 kg

DRUGS (6)
  1. SOTRADECOL [Suspect]
     Indication: SCLEROTHERAPY
     Route: 042
     Dates: start: 20130401, end: 20130401
  2. LEVOTHYROXINE [Concomitant]
  3. LISINOPRIL [Concomitant]
  4. CALCIUM [Concomitant]
  5. ASA [Concomitant]
  6. MVI [Concomitant]

REACTIONS (4)
  - Injection site pain [Not Recovered/Not Resolved]
  - Skin necrosis [Not Recovered/Not Resolved]
  - Cellulitis [Not Recovered/Not Resolved]
  - Wound [Not Recovered/Not Resolved]
